FAERS Safety Report 7414807-X (Version None)
Quarter: 2011Q2

REPORT INFORMATION
  Report Type: 
  Country: None (occurrence: None)
  Receive Date: 20110414
  Receipt Date: 20101020
  Transmission Date: 20111010
  Serious: No
  Sender: FDA-Public Use
  Company Number: A0887874A

PATIENT
  Age: 70 Year
  Sex: Female

DRUGS (2)
  1. LUXIQ [Suspect]
     Dosage: 1APP SINGLE DOSE
     Route: 061
  2. LISINOPRIL [Concomitant]

REACTIONS (1)
  - APPLICATION SITE PAIN [None]
